FAERS Safety Report 10083675 (Version 1)
Quarter: 2014Q2

REPORT INFORMATION
  Report Type: Spontaneous
  Country: US (occurrence: US)
  Receive Date: 20140417
  Receipt Date: 20140417
  Transmission Date: 20141212
  Serious: No
  Sender: FDA-Public Use
  Company Number: US-PFIZER INC-2014106412

PATIENT
  Age: 70 Year
  Sex: Female
  Weight: 71.02 kg

DRUGS (3)
  1. SUTENT [Suspect]
     Indication: MALIGNANT URINARY TRACT NEOPLASM
     Dosage: 50 MG, CYCLIC (28 DAYS ON, 14 DAYS OFF)
     Route: 048
     Dates: start: 20140227
  2. SUTENT [Suspect]
     Dosage: 37.5 MG, UNK
     Route: 048
  3. AMLODIPINE [Concomitant]
     Dosage: UNK

REACTIONS (5)
  - Ageusia [Unknown]
  - Stomatitis [Unknown]
  - Swelling face [Unknown]
  - Oedema peripheral [Unknown]
  - Fatigue [Unknown]
